FAERS Safety Report 23250469 (Version 1)
Quarter: 2023Q4

REPORT INFORMATION
  Report Type: Spontaneous
  Country: US (occurrence: None)
  Receive Date: 20231130
  Receipt Date: 20231130
  Transmission Date: 20240110
  Serious: Yes (unspecified)
  Sender: FDA-Public Use
  Company Number: None

PATIENT
  Age: 52 Year
  Sex: Female
  Weight: 89.55 kg

DRUGS (1)
  1. AUSTEDO [Suspect]
     Active Substance: DEUTETRABENAZINE
     Indication: Tardive dyskinesia
     Dates: start: 20231026, end: 20231105

REACTIONS (4)
  - Asthenia [None]
  - Lethargy [None]
  - Therapy cessation [None]
  - Motor dysfunction [None]

NARRATIVE: CASE EVENT DATE: 20231106
